FAERS Safety Report 19638145 (Version 1)
Quarter: 2021Q3

REPORT INFORMATION
  Report Type: Spontaneous
  Country: GB (occurrence: GB)
  Receive Date: 20210730
  Receipt Date: 20210730
  Transmission Date: 20211014
  Serious: Yes (Other)
  Sender: FDA-Public Use
  Company Number: GB-BAYER-2021-181661

PATIENT
  Age: 60 Year
  Sex: Female

DRUGS (4)
  1. ZOLEDRONATE [Concomitant]
     Active Substance: ZOLEDRONIC ACID
  2. LOMUSTINE. [Concomitant]
     Active Substance: LOMUSTINE
  3. NEXAVAR [Suspect]
     Active Substance: SORAFENIB
     Indication: ADRENOCORTICAL CARCINOMA
     Dosage: UNK
  4. CAPECITABINE. [Concomitant]
     Active Substance: CAPECITABINE

REACTIONS (3)
  - Drug ineffective [None]
  - Adrenocortical carcinoma [None]
  - Off label use [None]
